FAERS Safety Report 8932360 (Version 1)
Quarter: 2012Q4

REPORT INFORMATION
  Report Type: 
  Country: US (occurrence: US)
  Receive Date: 20121128
  Receipt Date: 20121128
  Transmission Date: 20130627
  Serious: Yes (Hospitalization, Other)
  Sender: FDA-Public Use
  Company Number: US-JNJFOC-20121111314

PATIENT
  Sex: Female
  Weight: 127.01 kg

DRUGS (4)
  1. CYCLOBENZAPRINE HYDROCHLORIDE [Suspect]
     Indication: MUSCLE TIGHTNESS
     Route: 048
     Dates: start: 2012
  2. BUPROPION [Concomitant]
     Indication: DEPRESSION
     Route: 048
  3. FLUOXETINE [Concomitant]
     Indication: DEPRESSION
     Route: 048
  4. PANTOPRAZOLE [Concomitant]
     Indication: IMPAIRED GASTRIC EMPTYING
     Route: 048
     Dates: start: 1993

REACTIONS (3)
  - Complex regional pain syndrome [Not Recovered/Not Resolved]
  - Poor quality sleep [Unknown]
  - Cellulitis [Not Recovered/Not Resolved]
